FAERS Safety Report 7315231-0 (Version None)
Quarter: 2011Q1

REPORT INFORMATION
  Report Type: 
  Country: None (occurrence: None)
  Receive Date: 20110218
  Receipt Date: 20110218
  Transmission Date: 20110831
  Serious: Yes (Other)
  Sender: FDA-Public Use
  Company Number: None

PATIENT
  Age: 60 Year
  Sex: Female
  Weight: 64.4108 kg

DRUGS (1)
  1. ALENDRONATE SODIUM [Suspect]
     Indication: OSTEOPENIA
     Dosage: 70 MG ONCE WEEKLY PO
     Route: 048
     Dates: start: 20090701, end: 20110206

REACTIONS (3)
  - COUGH [None]
  - THROAT IRRITATION [None]
  - OESOPHAGEAL DISORDER [None]
